FAERS Safety Report 5727302-0 (Version None)
Quarter: 2008Q2

REPORT INFORMATION
  Report Type: 
  Country: None (occurrence: None)
  Receive Date: 20080505
  Receipt Date: 20080423
  Transmission Date: 20081010
  Serious: Yes (Hospitalization)
  Sender: FDA-Public Use
  Company Number: US-AMGEN-US275932

PATIENT
  Sex: Male

DRUGS (6)
  1. ENBREL [Suspect]
     Indication: RHEUMATOID ARTHRITIS
     Route: 058
     Dates: start: 20030331
  2. MEDROL [Suspect]
     Route: 048
  3. MEDROL [Suspect]
     Route: 048
  4. NAPROSYN [Suspect]
     Route: 048
  5. FOSAMAX [Concomitant]
     Route: 065
  6. DIOVAN [Concomitant]
     Route: 065

REACTIONS (2)
  - STAPHYLOCOCCAL INFECTION [None]
  - TOE AMPUTATION [None]
